FAERS Safety Report 24687118 (Version 2)
Quarter: 2024Q4

REPORT INFORMATION
  Report Type: Spontaneous
  Country: US (occurrence: US)
  Receive Date: 20241202
  Receipt Date: 20241225
  Transmission Date: 20250115
  Serious: No
  Sender: BOEHRINGER INGELHEIM
  Company Number: US-Komodo Health-a23aa000004WOPtAAO

PATIENT
  Sex: Female

DRUGS (1)
  1. ADALIMUMAB-ADBM [Suspect]
     Active Substance: ADALIMUMAB-ADBM
     Indication: Product used for unknown indication
     Dosage: 0.8 ML/50 MG

REACTIONS (3)
  - Product administration error [Unknown]
  - Device issue [Unknown]
  - Device malfunction [Unknown]
